FAERS Safety Report 21314753 (Version 1)
Quarter: 2022Q3

REPORT INFORMATION
  Report Type: Spontaneous
  Country: US (occurrence: None)
  Receive Date: 20220909
  Receipt Date: 20220909
  Transmission Date: 20221027
  Serious: No
  Sender: FDA-Public Use
  Company Number: US-ARIS GLOBAL-202111-2013

PATIENT
  Sex: Male

DRUGS (7)
  1. OXERVATE [Suspect]
     Active Substance: CENEGERMIN-BKBJ
     Indication: Ulcerative keratitis
     Route: 047
     Dates: start: 20211025
  2. OXERVATE [Suspect]
     Active Substance: CENEGERMIN-BKBJ
     Indication: Hypoaesthesia eye
  3. VALACYCLOVIR [Concomitant]
     Active Substance: VALACYCLOVIR HYDROCHLORIDE
  4. MAGNESIUM [Concomitant]
     Active Substance: MAGNESIUM
  5. COLLAGEN [Concomitant]
     Active Substance: COLLAGEN
     Dosage: 125-740 MG
  6. VITAMIN D [Concomitant]
     Active Substance: VITAMIN D NOS
  7. OMEGA 3 [Concomitant]
     Active Substance: CAPSAICIN
     Dosage: 684-1200 MG

REACTIONS (1)
  - Periorbital pain [Unknown]
